FAERS Safety Report 13355087 (Version 1)
Quarter: 2017Q1

REPORT INFORMATION
  Report Type: Other
  Country: GB (occurrence: GB)
  Receive Date: 20170321
  Receipt Date: 20170321
  Transmission Date: 20170429
  Serious: Yes (Other)
  Sender: FDA-Public Use
  Company Number: GB-BECTON DICKINSON-2017BDN00094

PATIENT
  Age: 68 Year
  Sex: Female

DRUGS (7)
  1. MAGNESIUM [Concomitant]
     Active Substance: MAGNESIUM
  2. COD LIVER OIL [Concomitant]
     Active Substance: COD LIVER OIL
  3. FLECAINIDE [Concomitant]
     Active Substance: FLECAINIDE
     Dosage: UNK
     Route: 042
  4. FLUCLOXACILLIN [Concomitant]
     Active Substance: FLUCLOXACILLIN
     Indication: INFECTION PROPHYLAXIS
     Dosage: 1 G, UNK
     Route: 042
     Dates: start: 20170223, end: 20170223
  5. CHLORAPREP WITH TINT [Suspect]
     Active Substance: CHLORHEXIDINE GLUCONATE\ISOPROPYL ALCOHOL
     Indication: INFECTION PROPHYLAXIS
     Dosage: UNK
     Route: 061
     Dates: start: 20170223, end: 20170223
  6. DILTIAZEM. [Concomitant]
     Active Substance: DILTIAZEM
  7. APIXABAN [Concomitant]
     Active Substance: APIXABAN

REACTIONS (1)
  - Application site rash [Not Recovered/Not Resolved]

NARRATIVE: CASE EVENT DATE: 20170224
